FAERS Safety Report 6609568-8 (Version None)
Quarter: 2010Q1

REPORT INFORMATION
  Report Type: 
  Country: None (occurrence: None)
  Receive Date: 20100302
  Receipt Date: 20100222
  Transmission Date: 20100710
  Serious: Yes (Hospitalization)
  Sender: FDA-Public Use
  Company Number: FR-SANOFI-AVENTIS-2010SA010010

PATIENT
  Age: 81 Year
  Sex: Female

DRUGS (7)
  1. LOVENOX [Suspect]
     Indication: THROMBOSIS PROPHYLAXIS
     Route: 058
     Dates: start: 20090906, end: 20090910
  2. TENORMIN [Suspect]
     Route: 048
     Dates: end: 20090903
  3. TENORMIN [Suspect]
     Route: 048
     Dates: start: 20090904, end: 20090907
  4. PLAVIX [Concomitant]
     Indication: CARDIOVASCULAR EVENT PROPHYLAXIS
     Route: 048
  5. KARDEGIC [Concomitant]
     Indication: CARDIOVASCULAR EVENT PROPHYLAXIS
     Route: 048
  6. MOPRAL [Concomitant]
     Route: 048
  7. CRESTOR [Concomitant]
     Route: 048

REACTIONS (1)
  - BRADYCARDIA [None]
